FAERS Safety Report 22215481 (Version 1)
Quarter: 2023Q2

REPORT INFORMATION
  Report Type: Report from Study
  Country: US (occurrence: US)
  Receive Date: 20230416
  Receipt Date: 20230416
  Transmission Date: 20230721
  Serious: Yes (Hospitalization)
  Sender: FDA-Public Use
  Company Number: US-JNJFOC-20230405724

PATIENT
  Age: 50 Year
  Sex: Female
  Weight: 68.2 kg

DRUGS (3)
  1. EPOPROSTENOL SODIUM [Suspect]
     Active Substance: EPOPROSTENOL SODIUM
     Indication: Pulmonary arterial hypertension
     Route: 042
  2. ADCIRCA [Concomitant]
     Active Substance: TADALAFIL
  3. REVATIO [Concomitant]
     Active Substance: SILDENAFIL CITRATE

REACTIONS (3)
  - Device occlusion [Unknown]
  - Blood bicarbonate decreased [Unknown]
  - Underdose [Unknown]

NARRATIVE: CASE EVENT DATE: 20230402
